FAERS Safety Report 7255710-8 (Version None)
Quarter: 2011Q1

REPORT INFORMATION
  Report Type: 
  Country: None (occurrence: None)
  Receive Date: 20110129
  Receipt Date: 20100820
  Transmission Date: 20110831
  Serious: No
  Sender: FDA-Public Use
  Company Number: US-ABBOTT-10P-163-0664947-00

PATIENT
  Sex: Female

DRUGS (2)
  1. HUMIRA [Suspect]
     Indication: CROHN'S DISEASE
     Dosage: 160 MG PEN SQ DAY 1, 80 MG SQ DAY 15, 40 MG SQ DAY 29 EVERY OTHER WEEK
     Route: 058
     Dates: start: 20100809
  2. HUMIRA [Suspect]

REACTIONS (1)
  - INJECTION SITE HAEMATOMA [None]
